FAERS Safety Report 7623277-8 (Version None)
Quarter: 2011Q3

REPORT INFORMATION
  Report Type: 
  Country: None (occurrence: None)
  Receive Date: 20110720
  Receipt Date: 20110711
  Transmission Date: 20111222
  Serious: Yes (Hospitalization)
  Sender: FDA-Public Use
  Company Number: US-ASTRAZENECA-2011SE41060

PATIENT
  Age: 58 Year
  Sex: Male

DRUGS (5)
  1. SEROQUEL [Suspect]
     Indication: BIPOLAR I DISORDER
     Route: 048
     Dates: start: 20100101
  2. XANAX [Concomitant]
     Dosage: QID
  3. SOMA [Concomitant]
  4. CRESTOR [Concomitant]
     Route: 048
  5. BENECAR [Concomitant]

REACTIONS (8)
  - APPENDICECTOMY [None]
  - ABDOMINAL PAIN UPPER [None]
  - DIARRHOEA [None]
  - FATIGUE [None]
  - APPENDICITIS PERFORATED [None]
  - HAEMATOCHEZIA [None]
  - EAR INFECTION [None]
  - HYPERSOMNIA [None]
